FAERS Safety Report 9426253 (Version 1)
Quarter: 2013Q3

REPORT INFORMATION
  Report Type: Report from Study
  Country: CO (occurrence: CO)
  Receive Date: 20130730
  Receipt Date: 20130730
  Transmission Date: 20140515
  Serious: Yes (Hospitalization)
  Sender: FDA-Public Use
  Company Number: CO-ROCHE-1230721

PATIENT
  Age: 27 Year
  Sex: Male

DRUGS (1)
  1. CELLCEPT [Suspect]
     Indication: LIVER TRANSPLANT
     Route: 048
     Dates: start: 20070419

REACTIONS (4)
  - Bacteraemia [Recovered/Resolved]
  - Hepatotoxicity [Recovered/Resolved]
  - Transplant rejection [Recovered/Resolved]
  - Blood bilirubin increased [Recovered/Resolved]
